FAERS Safety Report 25177586 (Version 1)
Quarter: 2025Q2

REPORT INFORMATION
  Report Type: Spontaneous
  Country: US (occurrence: US)
  Receive Date: 20250409
  Receipt Date: 20250409
  Transmission Date: 20250717
  Serious: Yes (Other)
  Sender: UCB
  Company Number: US-UCBSA-2025020113

PATIENT
  Sex: Female
  Weight: 49.433 kg

DRUGS (4)
  1. FINTEPLA [Suspect]
     Active Substance: FENFLURAMINE
     Indication: Product used for unknown indication
  2. DEPAKOTE [Suspect]
     Active Substance: DIVALPROEX SODIUM
     Indication: Product used for unknown indication
     Dosage: 850 MILLIGRAM, ONCE DAILY (QD)
  3. DEPAKOTE [Suspect]
     Active Substance: DIVALPROEX SODIUM
     Dosage: 200 MILLIGRAM, ONCE DAILY (QD)
  4. ZONEGRAN [Concomitant]
     Active Substance: ZONISAMIDE
     Indication: Product used for unknown indication

REACTIONS (6)
  - Seizure [Recovering/Resolving]
  - Thrombocytopenia [Unknown]
  - Ataxia [Unknown]
  - Ammonia increased [Unknown]
  - Drug level increased [Recovered/Resolved]
  - Somnolence [Unknown]
